FAERS Safety Report 5557224-X (Version None)
Quarter: 2007Q4

REPORT INFORMATION
  Report Type: 
  Country: None (occurrence: None)
  Receive Date: 20071214
  Receipt Date: 20071205
  Transmission Date: 20080405
  Serious: Yes (Death)
  Sender: FDA-Public Use
  Company Number: JP-WYE-H01573307

PATIENT
  Sex: Female
  Weight: 64 kg

DRUGS (3)
  1. MYLOTARG [Suspect]
     Indication: ACUTE MYELOID LEUKAEMIA RECURRENT
     Route: 041
     Dates: start: 20070622, end: 20070622
  2. GANCICLOVIR [Concomitant]
     Indication: PROPHYLAXIS
     Route: 041
     Dates: start: 20070621, end: 20070626
  3. URSO 250 [Concomitant]
     Indication: PROPHYLAXIS
     Dosage: 6 DOSE FORM
     Route: 048
     Dates: start: 20061126, end: 20070626

REACTIONS (1)
  - SEPSIS [None]
